FAERS Safety Report 7388716-9 (Version None)
Quarter: 2011Q2

REPORT INFORMATION
  Report Type: 
  Country: None (occurrence: None)
  Receive Date: 20110401
  Receipt Date: 20110321
  Transmission Date: 20111010
  Serious: Yes (Death, Other)
  Sender: FDA-Public Use
  Company Number: TR-CELGENEUS-161-CCAZA-11032344

PATIENT

DRUGS (5)
  1. AZACITIDINE [Suspect]
  2. AZACITIDINE [Suspect]
  3. AZACITIDINE [Suspect]
     Route: 050
  4. AZACITIDINE [Suspect]
     Indication: REFRACTORY CYTOPENIA WITH MULTILINEAGE DYSPLASIA
  5. AZACITIDINE [Suspect]

REACTIONS (20)
  - ANGINA UNSTABLE [None]
  - SEPSIS [None]
  - ACUTE RESPIRATORY DISTRESS SYNDROME [None]
  - COMPLICATIONS OF TRANSPLANT SURGERY [None]
  - MULTI-ORGAN FAILURE [None]
  - PYREXIA [None]
  - BLOOD AMYLASE INCREASED [None]
  - DIZZINESS [None]
  - FEBRILE NEUTROPENIA [None]
  - ACUTE MYELOID LEUKAEMIA [None]
  - NO THERAPEUTIC RESPONSE [None]
  - BLOOD UREA INCREASED [None]
  - BLOOD CREATININE INCREASED [None]
  - ORAL INFECTION [None]
  - RENAL FAILURE [None]
  - NAUSEA [None]
  - CARDIAC FAILURE CONGESTIVE [None]
  - HAEMORRHAGE [None]
  - PNEUMONIA [None]
  - ANAL ABSCESS [None]
